FAERS Safety Report 24538196 (Version 1)
Quarter: 2024Q4

REPORT INFORMATION
  Report Type: Spontaneous
  Country: GB (occurrence: GB)
  Receive Date: 20241023
  Receipt Date: 20241023
  Transmission Date: 20250115
  Serious: Yes (Other)
  Sender: SANDOZ
  Company Number: GB-NOVPHSZ-PHHY2019GB107088

PATIENT
  Age: 55 Year
  Sex: Female
  Weight: 60 kg

DRUGS (1)
  1. DOXYCYCLINE HYCLATE [Suspect]
     Active Substance: DOXYCYCLINE HYCLATE
     Indication: Blister
     Dosage: 100 MG, UNK
     Route: 048
     Dates: start: 20190407, end: 20190411

REACTIONS (1)
  - Odynophagia [Recovering/Resolving]

NARRATIVE: CASE EVENT DATE: 20190411
